FAERS Safety Report 7945767-0 (Version None)
Quarter: 2011Q4

REPORT INFORMATION
  Report Type: 
  Country: None (occurrence: None)
  Receive Date: 20111129
  Receipt Date: 20110701
  Transmission Date: 20120403
  Serious: Yes (Other)
  Sender: FDA-Public Use
  Company Number: US-GLAXOSMITHKLINE-A0935231A

PATIENT
  Age: 64 Year
  Sex: Female

DRUGS (1)
  1. LANOXIN [Suspect]
     Route: 065

REACTIONS (1)
  - HALLUCINATION [None]
